FAERS Safety Report 5108948-X (Version None)
Quarter: 2006Q3

REPORT INFORMATION
  Report Type: 
  Country: None (occurrence: None)
  Receive Date: 20060920
  Receipt Date: 20060908
  Transmission Date: 20061208
  Serious: Yes (Other)
  Sender: FDA-Public Use
  Company Number: CA-JNJFOC-20060902227

PATIENT
  Sex: Female

DRUGS (6)
  1. TRAMACET [Suspect]
     Indication: SCOLIOSIS
     Dosage: ^1 TAB EVERY 4-6 HOURS (4-5 TABS PER DAY)^
  2. LECTOPAM TAB [Concomitant]
     Indication: ANXIETY
     Dosage: TID/QID
  3. RESTORIL [Concomitant]
     Indication: SLEEP DISORDER THERAPY
     Dosage: AT NIGHT
  4. TORADOL [Concomitant]
     Indication: PAIN
     Dosage: BID/TID
  5. NIZATIDINE [Concomitant]
     Indication: HYPERCHLORHYDRIA
  6. ESTRADOT [Concomitant]
     Indication: HORMONE REPLACEMENT THERAPY
     Dosage: EVERY 3-4 DAYS
     Route: 062

REACTIONS (8)
  - DRY EYE [None]
  - HEADACHE [None]
  - HYPERHIDROSIS [None]
  - OCULAR HYPERAEMIA [None]
  - PAIN IN EXTREMITY [None]
  - PANIC ATTACK [None]
  - PARAESTHESIA [None]
  - TREMOR [None]
